FAERS Safety Report 4310565-6 (Version None)
Quarter: 2004Q1

REPORT INFORMATION
  Report Type: 
  Country: None (occurrence: None)
  Receive Date: 20040303
  Receipt Date: 20040219
  Transmission Date: 20041129
  Serious: Yes (Life-Threatening, Hospitalization, Other)
  Sender: FDA-Public Use
  Company Number: GB-GLAXOSMITHKLINE-B0324017A

PATIENT
  Age: 64 Year
  Sex: Male

DRUGS (10)
  1. AVANDAMET [Suspect]
     Indication: DIABETES MELLITUS
     Route: 048
     Dates: start: 20031223, end: 20040214
  2. ATORVASTATIN [Concomitant]
     Dosage: 10MG PER DAY
     Route: 065
     Dates: start: 20031128
  3. CO-PROXAMOL [Concomitant]
     Route: 065
     Dates: start: 20021001
  4. GLICLAZIDE [Concomitant]
     Indication: DIABETES MELLITUS
     Dosage: 160MG PER DAY
     Route: 065
     Dates: start: 20021001
  5. DIGOXIN [Concomitant]
     Indication: ATRIAL FIBRILLATION
     Dosage: 250MCG PER DAY
     Route: 065
  6. FRUSEMIDE [Concomitant]
     Indication: HYPERTENSION
     Dosage: 80MG PER DAY
     Route: 065
     Dates: start: 20001001
  7. LACIDIPINE [Concomitant]
     Indication: HYPERTENSION
     Dosage: 4MG PER DAY
     Route: 065
     Dates: start: 19970826
  8. QUINAPRIL HCL [Concomitant]
     Dosage: 40MG PER DAY
     Route: 065
     Dates: start: 19970301
  9. WARFARIN [Concomitant]
     Indication: ATRIAL FIBRILLATION
     Route: 065
     Dates: start: 19970301
  10. METFORMIN [Concomitant]
     Indication: DIABETES MELLITUS
     Dosage: 1G PER DAY
     Route: 065
     Dates: end: 20031223

REACTIONS (3)
  - ANGIONEUROTIC OEDEMA [None]
  - OROPHARYNGEAL SWELLING [None]
  - SWELLING FACE [None]
